FAERS Safety Report 7468921-3 (Version None)
Quarter: 2011Q2

REPORT INFORMATION
  Report Type: 
  Country: None (occurrence: None)
  Receive Date: 20110510
  Receipt Date: 20060824
  Transmission Date: 20111010
  Serious: No
  Sender: FDA-Public Use
  Company Number: 2006BI012166

PATIENT
  Sex: Female

DRUGS (2)
  1. TYSABRI [Suspect]
     Indication: MULTIPLE SCLEROSIS
     Route: 042
     Dates: start: 20050201, end: 20050201
  2. TYSABRI [Suspect]
     Route: 042
     Dates: start: 20070503

REACTIONS (12)
  - COORDINATION ABNORMAL [None]
  - ARTHRITIS [None]
  - COGNITIVE DISORDER [None]
  - MUSCULAR WEAKNESS [None]
  - FIBROMYALGIA [None]
  - URINARY INCONTINENCE [None]
  - FAECAL INCONTINENCE [None]
  - GAIT DISTURBANCE [None]
  - INCONTINENCE [None]
  - MULTIPLE SCLEROSIS [None]
  - URINARY TRACT INFECTION [None]
  - ANAEMIA [None]
